FAERS Safety Report 14480285 (Version 1)
Quarter: 2018Q1

REPORT INFORMATION
  Report Type: Spontaneous
  Country: US (occurrence: US)
  Receive Date: 20180202
  Receipt Date: 20180202
  Transmission Date: 20180509
  Serious: No
  Sender: FDA-Public Use
  Company Number: US-009507513-1801USA013526

PATIENT
  Sex: Female
  Weight: 137.42 kg

DRUGS (1)
  1. NEXPLANON [Suspect]
     Active Substance: ETONOGESTREL
     Dosage: 1 DF, UNK
     Route: 059
     Dates: start: 201512

REACTIONS (3)
  - Medical device site discomfort [Unknown]
  - Device breakage [Recovered/Resolved]
  - Device kink [Recovered/Resolved]
